FAERS Safety Report 11203454 (Version 2)
Quarter: 2015Q3

REPORT INFORMATION
  Report Type: Spontaneous
  Country: CH (occurrence: CH)
  Receive Date: 20150619
  Receipt Date: 20150702
  Transmission Date: 20151125
  Serious: Yes (Other)
  Sender: FDA-Public Use
  Company Number: CH-BAYER-2015-324655

PATIENT
  Age: 70 Year
  Sex: Male

DRUGS (10)
  1. NEXAVAR [Suspect]
     Active Substance: SORAFENIB
     Indication: HEPATIC CANCER
     Dosage: 600 MG/D
     Route: 048
     Dates: start: 20141229
  2. NEXAVAR [Suspect]
     Active Substance: SORAFENIB
     Indication: HEPATIC CANCER
     Dosage: 800 MG/D
     Route: 048
     Dates: start: 20150406
  3. NEXAVAR [Suspect]
     Active Substance: SORAFENIB
     Indication: HEPATIC CANCER
     Dosage: 400 MG/D
     Route: 048
     Dates: start: 20141023
  4. NEXAVAR [Suspect]
     Active Substance: SORAFENIB
     Indication: HEPATIC CANCER
     Dosage: 800 MG/D
     Route: 048
     Dates: start: 20150115
  5. NEXAVAR [Suspect]
     Active Substance: SORAFENIB
     Indication: HEPATIC CANCER
     Dosage: 400 MG/D
     Route: 048
     Dates: start: 20141124
  6. NEXAVAR [Suspect]
     Active Substance: SORAFENIB
     Indication: HEPATIC CANCER
     Dosage: 400 MG/D
     Route: 048
     Dates: start: 20140927
  7. NEXAVAR [Suspect]
     Active Substance: SORAFENIB
     Indication: HEPATIC CANCER
     Dosage: 600 MG/D
     Route: 048
     Dates: start: 20141201
  8. NEXAVAR [Suspect]
     Active Substance: SORAFENIB
     Indication: HEPATIC CANCER
     Dosage: 800 MG/D
     Route: 048
     Dates: start: 20150303
  9. NEXAVAR [Suspect]
     Active Substance: SORAFENIB
     Indication: HEPATIC CANCER
     Dosage: 800 MG/D
     Route: 048
     Dates: start: 20150203
  10. NEXAVAR [Suspect]
     Active Substance: SORAFENIB
     Indication: HEPATIC CANCER
     Dosage: 800 MG/D
     Route: 048
     Dates: start: 20150325

REACTIONS (1)
  - Alpha 1 foetoprotein increased [Recovering/Resolving]
